FAERS Safety Report 4333731-2 (Version None)
Quarter: 2004Q2

REPORT INFORMATION
  Report Type: 
  Country: None (occurrence: None)
  Receive Date: 20040406
  Receipt Date: 20040406
  Transmission Date: 20050107
  Serious: Yes (Other)
  Sender: FDA-Public Use
  Company Number: None

PATIENT
  Age: 51 Year
  Sex: Female

DRUGS (3)
  1. OMEPRAZOLE [Suspect]
     Indication: GASTROOESOPHAGEAL REFLUX DISEASE
     Dosage: 40 MG BID ORAL
     Route: 048
     Dates: start: 20040309, end: 20040312
  2. OMEPRAZOLE [Suspect]
     Indication: HIATUS HERNIA
     Dosage: 40 MG BID ORAL
     Route: 048
     Dates: start: 20040309, end: 20040312
  3. OMEPRAZOLE [Suspect]
     Indication: OESOPHAGITIS
     Dosage: 40 MG BID ORAL
     Route: 048
     Dates: start: 20040309, end: 20040312

REACTIONS (5)
  - ABDOMINAL PAIN UPPER [None]
  - DISTURBANCE IN ATTENTION [None]
  - DIZZINESS [None]
  - HEADACHE [None]
  - INSOMNIA [None]
